FAERS Safety Report 12913521 (Version 1)
Quarter: 2016Q4

REPORT INFORMATION
  Report Type: Spontaneous
  Country: FR (occurrence: FR)
  Receive Date: 20161104
  Receipt Date: 20161104
  Transmission Date: 20170207
  Serious: Yes (Hospitalization)
  Sender: FDA-Public Use
  Company Number: FR-PFIZER INC-2016498422

PATIENT
  Age: 62 Year
  Sex: Female

DRUGS (6)
  1. ZOPHREN /00955301/ [Concomitant]
     Active Substance: ONDANSETRON
     Indication: PREMEDICATION
     Dosage: 8 MG, 1X/DAY
     Route: 042
     Dates: start: 20160908, end: 20160908
  2. METHYLPREDNISOLONE MERCK [Concomitant]
     Active Substance: METHYLPREDNISOLONE
     Indication: PREMEDICATION
     Dosage: 60 MG, 1X/DAY
     Route: 042
     Dates: start: 20160908, end: 20160908
  3. OXALIPLATIN. [Suspect]
     Active Substance: OXALIPLATIN
     Indication: COLON CANCER
     Dosage: 138 MG, 1X/DAY (85 MG/M2)
     Route: 041
     Dates: start: 20160908, end: 20160908
  4. ELVORINE [Suspect]
     Active Substance: LEUCOVORIN CALCIUM
     Indication: COLON CANCER
     Dosage: 324 MG, 1X/DAY
     Route: 041
     Dates: start: 20160908, end: 20160908
  5. PLITICAN [Concomitant]
     Active Substance: ALIZAPRIDE HYDROCHLORIDE
     Indication: PREMEDICATION
     Dosage: 100 MG, 1X/DAY
     Route: 042
     Dates: start: 20160908, end: 20160908
  6. IRINOTECAN HCL [Suspect]
     Active Substance: IRINOTECAN HYDROCHLORIDE
     Indication: COLON CANCER
     Dosage: 292 MG, 1X/DAY (180 MG/M2)
     Route: 041
     Dates: start: 20160908, end: 20160908

REACTIONS (1)
  - Urticaria [Recovered/Resolved]

NARRATIVE: CASE EVENT DATE: 20160908
